FAERS Safety Report 26219458 (Version 1)
Quarter: 2025Q4

REPORT INFORMATION
  Report Type: Spontaneous
  Country: US (occurrence: US)
  Receive Date: 20251231
  Receipt Date: 20251231
  Transmission Date: 20260118
  Serious: No
  Sender: SANOFI AVENTIS
  Company Number: US-SA-2025SA385721

PATIENT
  Age: 76 Year
  Sex: Female

DRUGS (1)
  1. DUPIXENT [Suspect]
     Active Substance: DUPILUMAB
     Indication: Pruritus
     Dosage: 2 DF, 1X
     Route: 065
     Dates: start: 20251211, end: 20251211

REACTIONS (2)
  - Injection site erythema [Not Recovered/Not Resolved]
  - Off label use [Unknown]

NARRATIVE: CASE EVENT DATE: 20251211
